FAERS Safety Report 7685459-9 (Version None)
Quarter: 2011Q3

REPORT INFORMATION
  Report Type: 
  Country: None (occurrence: None)
  Receive Date: 20110816
  Receipt Date: 20110215
  Transmission Date: 20111222
  Serious: No
  Sender: FDA-Public Use
  Company Number: US-BRISTOL-MYERS SQUIBB COMPANY-15551633

PATIENT
  Age: 82 Year
  Sex: Male

DRUGS (1)
  1. GLUCOVANCE [Suspect]
     Dosage: DURATION OF THERAPY: 3 YRS AGO

REACTIONS (2)
  - GASTROINTESTINAL PAIN [None]
  - DIARRHOEA [None]
